FAERS Safety Report 6314827-2 (Version None)
Quarter: 2009Q3

REPORT INFORMATION
  Report Type: 
  Country: None (occurrence: None)
  Receive Date: 20090817
  Receipt Date: 20090817
  Transmission Date: 20100115
  Serious: Yes (Other)
  Sender: FDA-Public Use
  Company Number: None

PATIENT
  Age: 78 Year
  Sex: Female
  Weight: 70.3075 kg

DRUGS (1)
  1. EVISTA [Suspect]
     Indication: OSTEOPOROSIS
     Dates: start: 20080206, end: 20080514

REACTIONS (6)
  - CALCULUS BLADDER [None]
  - FINGER DEFORMITY [None]
  - HIATUS HERNIA [None]
  - MUSCULAR WEAKNESS [None]
  - PAIN [None]
  - THROMBOSIS [None]
